FAERS Safety Report 11616272 (Version 3)
Quarter: 2015Q4

REPORT INFORMATION
  Report Type: Spontaneous
  Country: JP (occurrence: JP)
  Receive Date: 20151009
  Receipt Date: 20151120
  Transmission Date: 20160304
  Serious: Yes (Death)
  Sender: FDA-Public Use
  Company Number: JP-PFIZER INC-2015331053

PATIENT
  Age: 68 Year
  Sex: Male

DRUGS (2)
  1. INLYTA [Suspect]
     Active Substance: AXITINIB
     Indication: RENAL CANCER
     Dosage: 12 MG, DAILY
     Route: 048
     Dates: start: 20150602
  2. DENOSUMAB [Suspect]
     Active Substance: DENOSUMAB
     Dosage: 120 MG, DAILY

REACTIONS (3)
  - Pleural effusion [Unknown]
  - Stomatitis [Unknown]
  - Pneumonia [Fatal]

NARRATIVE: CASE EVENT DATE: 20150616
